FAERS Safety Report 18467731 (Version 1)
Quarter: 2020Q4

REPORT INFORMATION
  Report Type: Spontaneous
  Country: US (occurrence: US)
  Receive Date: 20201104
  Receipt Date: 20201104
  Transmission Date: 20210114
  Serious: Yes (Hospitalization)
  Sender: FDA-Public Use
  Company Number: None

PATIENT
  Age: 50 Year
  Sex: Female
  Weight: 58.5 kg

DRUGS (1)
  1. IMVEXXY [Suspect]
     Active Substance: ESTRADIOL
     Indication: ATROPHIC VULVOVAGINITIS
     Dosage: ?          QUANTITY:18 SUPPOSITORY(IES);?
     Route: 067
     Dates: start: 20200927, end: 20201013

REACTIONS (1)
  - Migraine [None]

NARRATIVE: CASE EVENT DATE: 20201013
